FAERS Safety Report 8172520-8 (Version None)
Quarter: 2012Q1

REPORT INFORMATION
  Report Type: 
  Country: None (occurrence: None)
  Receive Date: 20120229
  Receipt Date: 20120221
  Transmission Date: 20120608
  Serious: Yes (Other)
  Sender: FDA-Public Use
  Company Number: US-BAYER-2012-017436

PATIENT
  Sex: Female

DRUGS (3)
  1. YASMIN [Suspect]
     Route: 048
  2. DROSPIRENONE AND ETHINYL ESTRADIOL [Suspect]
     Route: 048
  3. YAZ [Suspect]
     Route: 048

REACTIONS (2)
  - PAIN [None]
  - GALLBLADDER INJURY [None]
